FAERS Safety Report 6103937-0 (Version None)
Quarter: 2009Q1

REPORT INFORMATION
  Report Type: 
  Country: None (occurrence: None)
  Receive Date: 20090305
  Receipt Date: 20090227
  Transmission Date: 20090719
  Serious: Yes (Death, Hospitalization)
  Sender: FDA-Public Use
  Company Number: B0547563A

PATIENT
  Age: 69 Year
  Sex: Female

DRUGS (3)
  1. ARIXTRA [Suspect]
     Route: 065
  2. ANTI-INFLAMMATORY AGENTS [Concomitant]
  3. PLAVIX [Concomitant]

REACTIONS (7)
  - ARTHRITIS BACTERIAL [None]
  - ARTHRITIS INFECTIVE [None]
  - CHEST PAIN [None]
  - DEEP VEIN THROMBOSIS [None]
  - DYSPNOEA [None]
  - OEDEMA PERIPHERAL [None]
  - PULMONARY EMBOLISM [None]
